FAERS Safety Report 5421159-3 (Version None)
Quarter: 2007Q3

REPORT INFORMATION
  Report Type: 
  Country: None (occurrence: None)
  Receive Date: 20070720
  Receipt Date: 20060807
  Transmission Date: 20080115
  Serious: Yes (Hospitalization)
  Sender: FDA-Public Use
  Company Number: 2007PL000010

PATIENT
  Age: 62 Year
  Sex: Male

DRUGS (7)
  1. IMURAN [Suspect]
     Indication: COLITIS
     Dosage: PO
     Route: 048
     Dates: start: 20060601
  2. URSODIOL [Concomitant]
  3. RABEPRAZOLE SODIUM [Concomitant]
  4. CLOPIDOGREL [Concomitant]
  5. ASPIRIN [Concomitant]
  6. EZETIMIBE [Concomitant]
  7. MESALAMINE [Concomitant]

REACTIONS (1)
  - PANCREATITIS [None]
